FAERS Safety Report 9086217 (Version 2)
Quarter: 2013Q1

REPORT INFORMATION
  Report Type: Spontaneous
  Country: FR (occurrence: FR)
  Receive Date: 20130131
  Receipt Date: 20130201
  Transmission Date: 20140127
  Serious: Yes (Other)
  Sender: FDA-Public Use
  Company Number: FR-PFIZER INC-2013035638

PATIENT
  Age: 55 Year
  Sex: Female

DRUGS (5)
  1. ALDACTONE [Suspect]
     Indication: OEDEMA PERIPHERAL
     Dosage: 50 MG, 2X/DAY
     Route: 048
     Dates: end: 20121010
  2. ALDACTONE [Interacting]
     Indication: OVERWEIGHT
  3. EFFEXOR [Interacting]
     Dosage: 3 TABLETS AT 37.5MG, 1X/DAY
     Route: 048
     Dates: start: 20121002, end: 20121011
  4. ESIDREX [Interacting]
     Indication: OEDEMA PERIPHERAL
     Dosage: UNK
     Route: 048
     Dates: end: 20121010
  5. ESIDREX [Interacting]
     Indication: OVERWEIGHT

REACTIONS (3)
  - Drug interaction [Recovered/Resolved]
  - Hyponatraemia [Recovered/Resolved]
  - Hypotension [Unknown]
